FAERS Safety Report 15084213 (Version 2)
Quarter: 2018Q3

REPORT INFORMATION
  Report Type: Spontaneous
  Country: FR (occurrence: FR)
  Receive Date: 20180628
  Receipt Date: 20180711
  Transmission Date: 20181010
  Serious: Yes (Hospitalization)
  Sender: FDA-Public Use
  Company Number: FR-SA-2018SA161626

PATIENT
  Age: 55 Year
  Sex: Female
  Weight: 42 kg

DRUGS (5)
  1. FOLIC ACID. [Concomitant]
     Active Substance: FOLIC ACID
     Route: 048
     Dates: start: 20180427
  2. RIFAMPICIN [Suspect]
     Active Substance: RIFAMPIN
     Indication: Q FEVER
     Route: 048
     Dates: start: 20180427, end: 20180507
  3. LEVOFLOXACINE [LEVOFLOXACIN] [Concomitant]
     Route: 048
     Dates: start: 20180427
  4. ATORVASTATIN [Concomitant]
     Active Substance: ATORVASTATIN
     Route: 048
  5. CLOPIDOGREL HYDROCHLORIDE [Concomitant]
     Active Substance: CLOPIDOGREL HYDROCHLORIDE
     Route: 048

REACTIONS (3)
  - General physical health deterioration [Recovering/Resolving]
  - Pyrexia [Recovered/Resolved]
  - Asthenia [Recovering/Resolving]

NARRATIVE: CASE EVENT DATE: 20180502
